FAERS Safety Report 21794393 (Version 1)
Quarter: 2022Q4

REPORT INFORMATION
  Report Type: Spontaneous
  Country: NL (occurrence: NL)
  Receive Date: 20221229
  Receipt Date: 20221229
  Transmission Date: 20230112
  Serious: Yes (Other)
  Sender: FDA-Public Use
  Company Number: NL-AMGEN-NLDSP2022223392

PATIENT

DRUGS (1)
  1. ADALIMUMAB [Suspect]
     Active Substance: ADALIMUMAB
     Indication: Rheumatoid arthritis
     Dosage: UNK
     Route: 065

REACTIONS (17)
  - Rheumatoid arthritis [Unknown]
  - Systemic lupus erythematosus [Unknown]
  - Stomatitis [Unknown]
  - Blepharitis [Unknown]
  - Malaise [Unknown]
  - Herpes zoster [Unknown]
  - Cystitis [Unknown]
  - Influenza like illness [Unknown]
  - Urticaria [Unknown]
  - Injection site pain [Unknown]
  - Fatigue [Unknown]
  - Cough [Unknown]
  - Injection site bruising [Unknown]
  - Fear of disease [Unknown]
  - Illness [Unknown]
  - Device issue [Unknown]
  - Device failure [Unknown]
